FAERS Safety Report 6957563-1 (Version None)
Quarter: 2010Q3

REPORT INFORMATION
  Report Type: 
  Country: None (occurrence: None)
  Receive Date: 20100831
  Receipt Date: 20100820
  Transmission Date: 20110219
  Serious: Yes (Other)
  Sender: FDA-Public Use
  Company Number: US-NOVOPROD-313647

PATIENT
  Age: 61 Year
  Sex: Male

DRUGS (5)
  1. VICTOZA [Suspect]
     Indication: DIABETES MELLITUS
     Dosage: 0.6 MG, TWO DOSES
     Route: 058
  2. METFORMIN [Suspect]
     Indication: DIABETES MELLITUS
     Dosage: UNKNOWN
  3. ACTOS [Suspect]
     Indication: DIABETES MELLITUS
     Dosage: UNKNOWN
  4. JANUVIA [Suspect]
     Indication: DIABETES MELLITUS
     Dosage: UNKNOWN
  5. LIPITOR [Suspect]
     Indication: PRODUCT USED FOR UNKNOWN INDICATION
     Dosage: UNKNOWN

REACTIONS (3)
  - ACUTE MYOCARDIAL INFARCTION [None]
  - CHEST PAIN [None]
  - NAUSEA [None]
